FAERS Safety Report 5858088-7 (Version None)
Quarter: 2008Q3

REPORT INFORMATION
  Report Type: 
  Country: None (occurrence: None)
  Receive Date: 20080826
  Receipt Date: 20080813
  Transmission Date: 20090109
  Serious: Yes (Hospitalization, Other)
  Sender: FDA-Public Use
  Company Number: ES-BAYER-200824803GPV

PATIENT
  Age: 30 Year
  Sex: Male

DRUGS (4)
  1. FLUDARABINE [Suspect]
     Indication: ACUTE MYELOID LEUKAEMIA
     Route: 065
     Dates: start: 20000101, end: 20000801
  2. CYTARABINE [Suspect]
     Indication: ACUTE MYELOID LEUKAEMIA
     Route: 065
     Dates: start: 20000101, end: 20000801
  3. IDARUBICIN HCL [Suspect]
     Indication: ACUTE MYELOID LEUKAEMIA
     Route: 065
     Dates: start: 20000101, end: 20000801
  4. NEUPOGEN [Concomitant]
     Indication: ACUTE MYELOID LEUKAEMIA
     Route: 065
     Dates: start: 20000101

REACTIONS (9)
  - ABDOMINAL PAIN [None]
  - ANURIA [None]
  - DIARRHOEA [None]
  - ESCHERICHIA BACTERAEMIA [None]
  - GRANULOCYTOPENIA [None]
  - HYPOTENSION [None]
  - NEUTROPENIC COLITIS [None]
  - PYREXIA [None]
  - VOMITING [None]
